FAERS Safety Report 25686600 (Version 1)
Quarter: 2025Q3

REPORT INFORMATION
  Report Type: Report from Study
  Country: CA (occurrence: CA)
  Receive Date: 20250816
  Receipt Date: 20250816
  Transmission Date: 20251020
  Serious: Yes (Hospitalization, Other)
  Sender: CELLTRION
  Company Number: CA-CELLTRION INC.-2024CA018368

PATIENT

DRUGS (3)
  1. ADALIMUMAB-AATY [Suspect]
     Active Substance: ADALIMUMAB-AATY
     Indication: Crohn^s disease
     Dosage: 40 MG 2 WEEKS (PRESCRIPTION: WEEK 0: 180MG, WEEK 2: 80MG, 40MG EVERY 2 WEEKS)
     Route: 058
     Dates: start: 20240530
  2. ADALIMUMAB-AATY [Suspect]
     Active Substance: ADALIMUMAB-AATY
     Dosage: 40 MG, Q 1 WEEK
     Route: 058
     Dates: start: 20240530
  3. ADALIMUMAB-AATY [Suspect]
     Active Substance: ADALIMUMAB-AATY
     Dosage: 40 MG 2 WEEKS (PRESCRIPTION: WEEK 0: 180MG, WEEK 2: 80MG, 40MG EVERY 2 WEEKS)
     Route: 058
     Dates: start: 20240724

REACTIONS (6)
  - Clostridium difficile infection [Recovered/Resolved]
  - Intentional dose omission [Recovered/Resolved]
  - Prescribed overdose [Recovered/Resolved]
  - Product dose omission issue [Recovered/Resolved]
  - Product use issue [Recovered/Resolved]
  - Hospitalisation [Unknown]
